FAERS Safety Report 11784214 (Version 3)
Quarter: 2015Q4

REPORT INFORMATION
  Report Type: Report from Study
  Country: BR (occurrence: BR)
  Receive Date: 20151128
  Receipt Date: 20151228
  Transmission Date: 20160305
  Serious: Yes (Hospitalization, Other)
  Sender: FDA-Public Use
  Company Number: PHHY2015BR154733

PATIENT
  Age: 79 Year
  Sex: Female
  Weight: 50 kg

DRUGS (4)
  1. GLIFAGE [Concomitant]
     Active Substance: METFORMIN HYDROCHLORIDE
     Indication: CENTRAL NERVOUS SYSTEM STIMULATION
     Dosage: 1 DF, QD
     Route: 048
  2. EXELON PATCH [Suspect]
     Active Substance: RIVASTIGMINE
     Dosage: PATCH 15 CM2
     Route: 062
  3. EXELON PATCH [Suspect]
     Active Substance: RIVASTIGMINE
     Indication: MEMORY IMPAIRMENT
     Dosage: PATCH 10 CM2
     Route: 062
  4. ALOIS [Concomitant]
     Active Substance: MEMANTINE
     Indication: CENTRAL NERVOUS SYSTEM STIMULATION
     Dosage: 2 DF, QD
     Route: 048

REACTIONS (7)
  - Fall [Recovering/Resolving]
  - Femur fracture [Recovering/Resolving]
  - Accident [Unknown]
  - Gait apraxia [Recovering/Resolving]
  - Drug ineffective [Unknown]
  - Cognitive disorder [Recovering/Resolving]
  - Asthenia [Recovering/Resolving]

NARRATIVE: CASE EVENT DATE: 201506
